FAERS Safety Report 6676729-1 (Version None)
Quarter: 2010Q2

REPORT INFORMATION
  Report Type: 
  Country: None (occurrence: None)
  Receive Date: 20100412
  Receipt Date: 20100401
  Transmission Date: 20101027
  Serious: Yes (Other)
  Sender: FDA-Public Use
  Company Number: JP-ROCHE-688721

PATIENT
  Sex: Male

DRUGS (3)
  1. TAMIFLU [Suspect]
     Indication: INFLUENZA
     Dosage: DRUG:TAMIFLU CAPSULE(OSELTAMIVIR)
     Route: 048
     Dates: start: 20100202, end: 20100202
  2. TAMIFLU [Suspect]
     Route: 048
     Dates: start: 20100203, end: 20100206
  3. TAMIFLU [Suspect]
     Route: 048
     Dates: start: 20100207, end: 20100207

REACTIONS (1)
  - SOMNAMBULISM [None]
